FAERS Safety Report 7146922 (Version 2)
Quarter: 2014Q4

REPORT INFORMATION
  Report Type: Report from Study
  Country: BE (occurrence: BE)
  Receive Date: 20091012
  Receipt Date: 20141124
  Transmission Date: 20150529
  Serious: No
  Sender: FDA-Public Use
  Company Number: BE-BRISTOL-MYERS SQUIBB COMPANY-14810592

PATIENT
  Age: 29 Year
  Sex: Female
  Weight: 74 kg

DRUGS (5)
  1. HYDROCORTISONE. [Concomitant]
     Active Substance: HYDROCORTISONE
  2. FLUDROCORTISONE [Concomitant]
     Active Substance: FLUDROCORTISONE
  3. EZETROL [Concomitant]
     Active Substance: EZETIMIBE
     Dosage: 1 DF= 10(UNIT NOT SPEC)
  4. CRESTOR [Concomitant]
     Active Substance: ROSUVASTATIN CALCIUM
     Dosage: 1 DF= 40(UNIT NOT SPEC)
  5. LYSODREN [Suspect]
     Active Substance: MITOTANE
     Indication: ADRENAL GLAND CANCER
     Dates: start: 20090119, end: 20090601

REACTIONS (2)
  - Hypercholesterolaemia [Recovering/Resolving]
  - Liver function test abnormal [Recovering/Resolving]

NARRATIVE: CASE EVENT DATE: 2009
